FAERS Safety Report 9908720 (Version 1)
Quarter: 2014Q1

REPORT INFORMATION
  Report Type: Spontaneous
  Country: SE (occurrence: None)
  Receive Date: 20140212
  Receipt Date: 20140212
  Transmission Date: 20141002
  Serious: Yes (Death)
  Sender: FDA-Public Use
  Company Number: 2014P1000958

PATIENT
  Age: 90 Year
  Sex: Male

DRUGS (2)
  1. CITALOPRAM [Suspect]
     Dosage: UNKNOWN - UNKNOWN
  2. PARACETAMOL [Suspect]
     Dosage: UNKNOWN-UNKNOWN

REACTIONS (2)
  - Completed suicide [None]
  - Toxicity to various agents [None]
